FAERS Safety Report 9842296 (Version 1)
Quarter: 2014Q1

REPORT INFORMATION
  Report Type: Report from Study
  Country: GR (occurrence: GR)
  Receive Date: 20140124
  Receipt Date: 20140124
  Transmission Date: 20141002
  Serious: Yes (Life-Threatening, Hospitalization)
  Sender: FDA-Public Use
  Company Number: GR-ELI_LILLY_AND_COMPANY-GR201401007950

PATIENT
  Age: 72 Year
  Sex: Male
  Weight: 165.4 kg

DRUGS (8)
  1. GEMCITABINE HYDROCHLORIDE [Suspect]
     Indication: PANCREATIC CARCINOMA METASTATIC
     Dosage: 1850 MG, EVERY TWO WEEKS
     Route: 042
     Dates: start: 20130711, end: 20130822
  2. TEMSIROLIMUS [Suspect]
     Indication: PANCREATIC CARCINOMA METASTATIC
     Dosage: 25 MG, WEEKLY (1/W)
     Route: 042
     Dates: start: 20130711, end: 20130829
  3. ZOFRAN [Concomitant]
     Indication: PREMEDICATION
     Dosage: 8 MG, UNK
     Route: 042
     Dates: start: 20130711, end: 20130829
  4. ZANTAC [Concomitant]
     Indication: PREMEDICATION
     Dosage: 50 MG, UNK
     Route: 042
     Dates: start: 20130711, end: 20130829
  5. FENISTIL [Concomitant]
     Indication: PREMEDICATION
     Dosage: 8 MG, UNK
     Route: 042
     Dates: start: 20130711, end: 20130829
  6. DEXAMETHASONE [Concomitant]
     Indication: PREMEDICATION
     Dosage: 4 MG, UNK
     Route: 042
     Dates: start: 20130711, end: 20130829
  7. SOTALOL [Concomitant]
     Indication: ARRHYTHMIA
     Dosage: UNK
     Route: 048
  8. PANTOPRAZOLE [Concomitant]
     Indication: GASTROOESOPHAGEAL REFLUX DISEASE
     Dosage: 40 MG, QD
     Route: 048

REACTIONS (1)
  - Pneumocystis jirovecii infection [Recovered/Resolved]
